FAERS Safety Report 10433007 (Version 1)
Quarter: 2014Q3

REPORT INFORMATION
  Report Type: Spontaneous
  Country: US (occurrence: US)
  Receive Date: 20140905
  Receipt Date: 20140905
  Transmission Date: 20150326
  Serious: Yes (Other)
  Sender: FDA-Public Use
  Company Number: US-SHIRE-US201405222

PATIENT

DRUGS (1)
  1. CARBATROL [Suspect]
     Active Substance: CARBAMAZEPINE
     Indication: BIPOLAR DISORDER
     Dosage: 200 MG, 2X/DAY:BID
     Route: 048

REACTIONS (3)
  - Thrombocytopenia [Unknown]
  - Off label use [Recovered/Resolved]
  - Skin reaction [Unknown]
